FAERS Safety Report 4908491-4 (Version None)
Quarter: 2006Q1

REPORT INFORMATION
  Report Type: 
  Country: None (occurrence: None)
  Receive Date: 20060210
  Receipt Date: 20050803
  Transmission Date: 20060701
  Serious: Yes (Disabling)
  Sender: FDA-Public Use
  Company Number: US-GLAXOSMITHKLINE-A0568829A

PATIENT
  Age: 23 Year
  Sex: Female

DRUGS (4)
  1. PAXIL CR [Suspect]
     Dosage: 37.5MG PER DAY
     Route: 048
  2. ALLEGRA [Concomitant]
  3. SYNTHROID [Concomitant]
  4. NASONEX [Concomitant]

REACTIONS (1)
  - DEAFNESS [None]
